FAERS Safety Report 19125189 (Version 4)
Quarter: 2021Q2

REPORT INFORMATION
  Report Type: Report from Study
  Country: None (occurrence: US)
  Receive Date: 20210413
  Receipt Date: 20210616
  Transmission Date: 20210717
  Serious: Yes (Other)
  Sender: FDA-Public Use
  Company Number: US-ABBVIE-21K-163-3853842-00

PATIENT
  Age: 44 Year
  Sex: Female
  Weight: 89.44 kg

DRUGS (5)
  1. NP THYROID [Concomitant]
     Active Substance: LEVOTHYROXINE\LIOTHYRONINE
     Indication: HYPOTHYROIDISM
  2. HUMIRA [Suspect]
     Active Substance: ADALIMUMAB
     Indication: ANKYLOSING SPONDYLITIS
     Route: 058
     Dates: start: 201710, end: 20210421
  3. HUMIRA [Suspect]
     Active Substance: ADALIMUMAB
     Route: 058
     Dates: start: 20210527
  4. WELLBUTRIN [Concomitant]
     Active Substance: BUPROPION HYDROCHLORIDE
     Indication: ATTENTION DEFICIT HYPERACTIVITY DISORDER
  5. PROGESTERONE. [Concomitant]
     Active Substance: PROGESTERONE
     Indication: MENOPAUSAL SYMPTOMS

REACTIONS (10)
  - Tendon rupture [Recovered/Resolved]
  - Pyrexia [Recovered/Resolved]
  - SARS-CoV-2 test positive [Recovering/Resolving]
  - Cough [Recovering/Resolving]
  - Impaired healing [Recovering/Resolving]
  - Foot deformity [Recovered/Resolved]
  - Back pain [Recovering/Resolving]
  - Dyspnoea [Recovered/Resolved]
  - Foot deformity [Recovering/Resolving]
  - Medical device implantation [Recovering/Resolving]

NARRATIVE: CASE EVENT DATE: 201911
